FAERS Safety Report 5818387-1 (Version None)
Quarter: 2008Q3

REPORT INFORMATION
  Report Type: 
  Country: None (occurrence: None)
  Receive Date: 20080716
  Receipt Date: 20080709
  Transmission Date: 20090109
  Serious: Yes (Death, Hospitalization, Other)
  Sender: FDA-Public Use
  Company Number: 114-21880-08061427

PATIENT
  Age: 60 Year
  Sex: Female

DRUGS (11)
  1. REVLIMID [Suspect]
     Indication: MULTIPLE MYELOMA
     Dosage: 25 MG, QD, DAY 1-21, ORAL
     Route: 048
     Dates: start: 20080418, end: 20080601
  2. DEXAMETHASONE TAB [Concomitant]
  3. ASCAL (ACETYLSALICYLATE CALCIUM) [Concomitant]
  4. ANTIBIOTICS (ANTIBIOTICS) [Concomitant]
  5. GLIMEPIRIDE (GLIMEPIRIDE) (TABLETS) [Concomitant]
  6. VERAPAMIL (VERAPAMIL) (TABLETS) [Concomitant]
  7. TRAMADOL (TRAMADOL) (CAPSULES) [Concomitant]
  8. SYMBICORT (SYMBICORT TURBUHALER ^DRACO^) [Concomitant]
  9. CARBASALATE (CARBASALATE) [Concomitant]
  10. PARACETAMOL W/ CODEINE (GALENIC/ PARACETAMOL/ CODEINE/) (TABLETS) [Concomitant]
  11. VENTOLIN (SALBUTAMOL) (CAPSULES) [Concomitant]

REACTIONS (6)
  - CONSTIPATION [None]
  - DISEASE PROGRESSION [None]
  - EMOTIONAL DISORDER [None]
  - SEPSIS [None]
  - SOMNOLENCE [None]
  - URINARY TRACT INFECTION [None]
